FAERS Safety Report 16722145 (Version 1)
Quarter: 2019Q3

REPORT INFORMATION
  Report Type: Spontaneous
  Country: None (occurrence: None)
  Receive Date: 20190820
  Receipt Date: 20190820
  Transmission Date: 20191005
  Serious: No
  Sender: FDA-Public Use
  Company Number: US-BRAINTREE LABORATORIES-180517

PATIENT
  Age: 55 Year
  Sex: Female
  Weight: 80.29 kg

DRUGS (1)
  1. GOLYTELY [Suspect]
     Active Substance: POLYETHYLENE GLYCOL 3350\POTASSIUM CHLORIDE\SODIUM BICARBONATE\SODIUM CHLORIDE\SODIUM SULFATE ANHYDROUS
     Indication: COLONOSCOPY
     Dosage: ~0.12L
     Route: 048
     Dates: start: 20181008, end: 20181008

REACTIONS (3)
  - Vomiting [None]
  - Product preparation error [None]
  - Nausea [None]

NARRATIVE: CASE EVENT DATE: 20181008
